FAERS Safety Report 9745401 (Version 1)
Quarter: 2013Q4

REPORT INFORMATION
  Report Type: Spontaneous
  Country: US (occurrence: None)
  Receive Date: 20131206
  Receipt Date: 20131206
  Transmission Date: 20140711
  Serious: No
  Sender: FDA-Public Use
  Company Number: None

PATIENT
  Age: 28 Year
  Sex: Female

DRUGS (1)
  1. GABAPENTIN [Suspect]
     Indication: MANIA
     Route: 048
     Dates: start: 20131203

REACTIONS (2)
  - Aggression [None]
  - Abnormal behaviour [None]
